FAERS Safety Report 19692678 (Version 2)
Quarter: 2021Q3

REPORT INFORMATION
  Report Type: Report from Study
  Country: US (occurrence: US)
  Receive Date: 20210812
  Receipt Date: 20210817
  Transmission Date: 20211014
  Serious: Yes (Other)
  Sender: FDA-Public Use
  Company Number: US-TEVA-2021-US-1940206

PATIENT
  Age: 55 Year
  Sex: Female

DRUGS (4)
  1. MYCOPHENOLATE?MOFETIL [Suspect]
     Active Substance: MYCOPHENOLATE MOFETIL
     Indication: URTICARIAL VASCULITIS
     Dosage: 2000 MILLIGRAM DAILY;
     Route: 065
  2. HYDROXYCHLOROQUINE [Suspect]
     Active Substance: HYDROXYCHLOROQUINE
     Indication: URTICARIAL VASCULITIS
     Dosage: 400 MILLIGRAM DAILY;
     Route: 065
  3. RITUXIMAB. [Suspect]
     Active Substance: RITUXIMAB
     Indication: URTICARIAL VASCULITIS
     Route: 042
  4. OMALIZUMAB. [Suspect]
     Active Substance: OMALIZUMAB
     Indication: URTICARIAL VASCULITIS
     Route: 058

REACTIONS (1)
  - COVID-19 [Unknown]
